FAERS Safety Report 7042858-6 (Version None)
Quarter: 2010Q4

REPORT INFORMATION
  Report Type: 
  Country: None (occurrence: None)
  Receive Date: 20101013
  Receipt Date: 20091207
  Transmission Date: 20110411
  Serious: No
  Sender: FDA-Public Use
  Company Number: US-ASTRAZENECA-2009SE20749

PATIENT
  Age: 2855 Day
  Sex: Male

DRUGS (3)
  1. SYMBICORT [Suspect]
     Indication: ASTHMA
     Dosage: 160/4.5 UG, 2 PUFFS, BID
     Route: 055
     Dates: start: 20091003, end: 20091015
  2. FLONASE [Concomitant]
     Indication: RHINITIS ALLERGIC
     Route: 045
  3. PROVENTI HFA [Concomitant]
     Indication: ASTHMA
     Route: 055
     Dates: start: 20081229

REACTIONS (1)
  - ASTHMA [None]
